FAERS Safety Report 15309544 (Version 1)
Quarter: 2018Q3

REPORT INFORMATION
  Report Type: Spontaneous
  Country: DE (occurrence: DE)
  Receive Date: 20180823
  Receipt Date: 20180823
  Transmission Date: 20181010
  Serious: Yes (Death, Life-Threatening, Hospitalization)
  Sender: FDA-Public Use
  Company Number: DE-TEVA-2018-DE-946614

PATIENT
  Age: 92 Year
  Sex: Male

DRUGS (13)
  1. RISPERIDONE. [Suspect]
     Active Substance: RISPERIDONE
     Indication: PRODUCT USED FOR UNKNOWN INDICATION
     Dosage: DOSAGE FORM: UNSPECIFIED
     Route: 048
     Dates: start: 20171217, end: 20180102
  2. TAMSULOSIN [Concomitant]
     Active Substance: TAMSULOSIN
     Dosage: DOSAGE FORM: UNSPECIFIED
     Route: 048
     Dates: end: 20180105
  3. TAVOR [Concomitant]
     Dosage: DOSAGE FORM: UNSPECIFIED
     Route: 065
  4. RISPERIDONE. [Suspect]
     Active Substance: RISPERIDONE
     Dosage: 05?JAN?2018
     Route: 048
     Dates: start: 20180103, end: 20180105
  5. AMLODIPINE [Concomitant]
     Active Substance: AMLODIPINE BESYLATE
     Dosage: DOSAGE FORM: UNSPECIFIED
     Route: 048
     Dates: end: 20180105
  6. TORASEMID [Concomitant]
     Active Substance: TORSEMIDE
     Dosage: DOSAGE FORM: UNSPECIFIED
     Route: 048
     Dates: start: 20180103, end: 20180105
  7. RISPERIDONE. [Suspect]
     Active Substance: RISPERIDONE
     Route: 048
     Dates: start: 20171215, end: 20171216
  8. RAMIPRIL. [Concomitant]
     Active Substance: RAMIPRIL
     Dosage: DOSAGE FORM: UNSPECIFIED
     Route: 048
     Dates: end: 20180105
  9. ALLOPURINOL. [Concomitant]
     Active Substance: ALLOPURINOL
     Dosage: DOSAGE FORM: UNSPECIFIED
     Route: 048
     Dates: end: 20180105
  10. PRAVASTATIN. [Concomitant]
     Active Substance: PRAVASTATIN
     Dosage: DOSAGE FORM: UNSPECIFIED
     Route: 048
     Dates: end: 20180105
  11. ELIQUIS [Concomitant]
     Active Substance: APIXABAN
     Dosage: DOSAGE FORM: UNSPECIFIED
     Route: 048
     Dates: end: 20180105
  12. PIPAMPERONE [Suspect]
     Active Substance: PIPAMPERONE
     Indication: PRODUCT USED FOR UNKNOWN INDICATION
     Dosage: DOSAGE FORM: UNSPECIFIED
     Route: 048
     Dates: start: 20171215, end: 20180105
  13. PANTOPRAZOLE [Concomitant]
     Active Substance: PANTOPRAZOLE
     Dosage: DOSAGE FORM: UNSPECIFIED
     Route: 048
     Dates: end: 20180105

REACTIONS (3)
  - Immobile [Not Recovered/Not Resolved]
  - C-reactive protein increased [Not Recovered/Not Resolved]
  - Death [Fatal]

NARRATIVE: CASE EVENT DATE: 201712
